FAERS Safety Report 5397767-5 (Version None)
Quarter: 2007Q3

REPORT INFORMATION
  Report Type: 
  Country: None (occurrence: None)
  Receive Date: 20070726
  Receipt Date: 20070716
  Transmission Date: 20080115
  Serious: Yes (Hospitalization)
  Sender: FDA-Public Use
  Company Number: B0479274A

PATIENT
  Age: 28 Year
  Sex: Female

DRUGS (1)
  1. REQUIP [Suspect]
     Indication: PARKINSON'S DISEASE
     Route: 048
     Dates: start: 20050901

REACTIONS (14)
  - ABNORMAL BEHAVIOUR [None]
  - AGITATION [None]
  - DYSKINESIA [None]
  - DYSTONIA [None]
  - EUPHORIC MOOD [None]
  - HYPERSEXUALITY [None]
  - INSOMNIA [None]
  - LOGORRHOEA [None]
  - MANIA [None]
  - MARITAL PROBLEM [None]
  - MYOCLONUS [None]
  - NERVOUS SYSTEM DISORDER [None]
  - PATHOLOGICAL GAMBLING [None]
  - PSYCHOMOTOR HYPERACTIVITY [None]
